FAERS Safety Report 7713995-5 (Version None)
Quarter: 2011Q3

REPORT INFORMATION
  Report Type: 
  Country: None (occurrence: None)
  Receive Date: 20110826
  Receipt Date: 20110811
  Transmission Date: 20111222
  Serious: Yes (Hospitalization, Other)
  Sender: FDA-Public Use
  Company Number: US-ARROW GEN-2011-12727

PATIENT
  Sex: Female

DRUGS (3)
  1. FOSAMAX [Suspect]
     Indication: OSTEOPOROSIS
     Dosage: UNK
     Route: 048
     Dates: start: 20010101, end: 20100223
  2. ALENDRONATE SODIUM [Suspect]
     Indication: OSTEOPOROSIS
     Dosage: UNK
     Route: 048
     Dates: start: 20010101, end: 20100223
  3. FOSAMAX PLUS D [Suspect]
     Indication: OSTEOPOROSIS
     Dosage: UNK
     Route: 048
     Dates: start: 20010101, end: 20100223

REACTIONS (5)
  - SKELETAL INJURY [None]
  - LOW TURNOVER OSTEOPATHY [None]
  - TOXICITY TO VARIOUS AGENTS [None]
  - INJURY [None]
  - FEMUR FRACTURE [None]
